FAERS Safety Report 21906270 (Version 1)
Quarter: 2023Q1

REPORT INFORMATION
  Report Type: Report from Study
  Country: IN (occurrence: IN)
  Receive Date: 20230125
  Receipt Date: 20230125
  Transmission Date: 20230418
  Serious: Yes (Death, Other)
  Sender: FDA-Public Use
  Company Number: IN-SNT-000329

PATIENT
  Age: 69 Year
  Sex: Male

DRUGS (2)
  1. POSACONAZOLE [Suspect]
     Active Substance: POSACONAZOLE
     Indication: Product use in unapproved indication
     Dosage: 200 MILLIGRAM TWICE DAILY
     Route: 048
  2. AMPHOTERICIN B [Concomitant]
     Active Substance: AMPHOTERICIN B
     Indication: Mucormycosis
     Dosage: 5 MG/KG/D UNTIL A CUMULATIVE DOSE OF 2.5 TO 3 G WAS REACHED.
     Route: 065

REACTIONS (2)
  - Off label use [Unknown]
  - Cerebral disorder [Fatal]
